FAERS Safety Report 9738755 (Version 2)
Quarter: 2013Q4

REPORT INFORMATION
  Report Type: Not Available
  Country: US (occurrence: US)
  Receive Date: 20131209
  Receipt Date: 20131209
  Transmission Date: 20140711
  Serious: Yes (Death)
  Sender: FDA-Public Use
  Company Number: US-LUPIN PHARMACEUTICALS INC.-E2B_00001378

PATIENT
  Age: 70 Year
  Sex: Male
  Weight: 99.88 kg

DRUGS (12)
  1. LISINOPRIL TABLETS USP 10 MG [Suspect]
     Indication: RENAL DISORDER
     Dates: start: 201309, end: 20131014
  2. FENOFIBRATE [Concomitant]
     Indication: HYPERCHOLESTEROLAEMIA
  3. SIMVASTATIN [Concomitant]
     Indication: HYPERCHOLESTEROLAEMIA
  4. SERTRALINE [Concomitant]
     Indication: PRODUCT USED FOR UNKNOWN INDICATION
  5. GLIPIZIDE [Concomitant]
     Indication: DIABETES MELLITUS
  6. NORVASC [Concomitant]
     Indication: PRODUCT USED FOR UNKNOWN INDICATION
  7. INSULIN [Concomitant]
     Indication: DIABETES MELLITUS
     Route: 058
  8. METOPROLOL [Concomitant]
     Indication: PRODUCT USED FOR UNKNOWN INDICATION
  9. DIGOXIN [Concomitant]
     Indication: PRODUCT USED FOR UNKNOWN INDICATION
  10. VITAMINS B/C/D [Concomitant]
     Indication: VITAMIN SUPPLEMENTATION
  11. MVI [Concomitant]
     Indication: VITAMIN SUPPLEMENTATION
  12. L-CARNITINE [Concomitant]
     Indication: SUPPLEMENTATION THERAPY

REACTIONS (5)
  - Death [Fatal]
  - Headache [Recovering/Resolving]
  - Diarrhoea [Recovering/Resolving]
  - Gastritis [Recovering/Resolving]
  - Abdominal pain upper [Recovering/Resolving]
